FAERS Safety Report 4375572-6 (Version None)
Quarter: 2004Q2

REPORT INFORMATION
  Report Type: 
  Country: None (occurrence: None)
  Receive Date: 20040607
  Receipt Date: 20040525
  Transmission Date: 20050107
  Serious: Yes (Other)
  Sender: FDA-Public Use
  Company Number: US-SHR-04-020928

PATIENT
  Age: 36 Year
  Sex: Male
  Weight: 107 kg

DRUGS (11)
  1. BETASERON [Suspect]
     Indication: MULTIPLE SCLEROSIS
     Dosage: 8 MIU, EVERY 2 D, PM, SUBCUTANEOUS
     Route: 059
     Dates: start: 19971101
  2. PREDNISONE [Concomitant]
  3. BACLOFEN [Concomitant]
  4. XANAX [Concomitant]
  5. CELEBREX [Concomitant]
  6. RANITIDINE [Concomitant]
  7. NEURONTIN [Concomitant]
  8. LISINOPRIL W/HYDROCHLOROTHIAZIDE (LISINOPRIL) [Concomitant]
  9. FLUOCINONIDE [Concomitant]
  10. ACTONEL [Concomitant]
  11. MARIJUANA    (CANNABIS SATIVA) [Concomitant]

REACTIONS (12)
  - ALANINE AMINOTRANSFERASE INCREASED [None]
  - ASPARTATE AMINOTRANSFERASE INCREASED [None]
  - BLOOD IRON INCREASED [None]
  - HEPATOTOXICITY [None]
  - HYPERPARATHYROIDISM PRIMARY [None]
  - LABORATORY TEST ABNORMAL [None]
  - OSTEOPOROSIS [None]
  - PLATELET COUNT DECREASED [None]
  - PORPHYRIA NON-ACUTE [None]
  - POSTOPERATIVE INFECTION [None]
  - SEBORRHOEIC DERMATITIS [None]
  - WHITE BLOOD CELL COUNT DECREASED [None]
